FAERS Safety Report 10085168 (Version 1)
Quarter: 2014Q2

REPORT INFORMATION
  Report Type: Spontaneous
  Country: PT (occurrence: PT)
  Receive Date: 20140417
  Receipt Date: 20140417
  Transmission Date: 20141212
  Serious: Yes (Hospitalization)
  Sender: FDA-Public Use
  Company Number: PT-ALLERGAN-1407521US

PATIENT
  Age: 75 Year
  Sex: Male

DRUGS (1)
  1. BOTOX [Suspect]
     Indication: BENIGN PROSTATIC HYPERPLASIA
     Dosage: 200 UNITS, SINGLE
     Route: 043

REACTIONS (2)
  - Urinary retention [Unknown]
  - Off label use [Unknown]
